FAERS Safety Report 25588353 (Version 1)
Quarter: 2025Q3

REPORT INFORMATION
  Report Type: Spontaneous
  Country: US (occurrence: US)
  Receive Date: 20250722
  Receipt Date: 20250722
  Transmission Date: 20251020
  Serious: No
  Sender: ENDO
  Company Number: US-ENDO USA, INC.-2025-001093

PATIENT
  Sex: Male

DRUGS (15)
  1. EDEX [Suspect]
     Active Substance: ALPROSTADIL
     Indication: Product used for unknown indication
     Route: 051
  2. EDEX [Suspect]
     Active Substance: ALPROSTADIL
     Indication: Product used for unknown indication
     Route: 051
  3. EDEX [Suspect]
     Active Substance: ALPROSTADIL
     Indication: Product used for unknown indication
     Route: 051
  4. EDEX [Suspect]
     Active Substance: ALPROSTADIL
     Indication: Product used for unknown indication
     Route: 051
  5. EDEX [Suspect]
     Active Substance: ALPROSTADIL
     Indication: Product used for unknown indication
     Route: 051
  6. EDEX [Suspect]
     Active Substance: ALPROSTADIL
     Indication: Product used for unknown indication
     Route: 051
  7. EDEX [Suspect]
     Active Substance: ALPROSTADIL
     Indication: Product used for unknown indication
     Route: 051
  8. EDEX [Suspect]
     Active Substance: ALPROSTADIL
     Indication: Product used for unknown indication
     Route: 051
  9. EDEX [Suspect]
     Active Substance: ALPROSTADIL
     Indication: Product used for unknown indication
     Route: 051
  10. EDEX [Suspect]
     Active Substance: ALPROSTADIL
     Indication: Product used for unknown indication
     Route: 051
  11. EDEX [Suspect]
     Active Substance: ALPROSTADIL
     Route: 051
  12. EDEX [Suspect]
     Active Substance: ALPROSTADIL
     Route: 051
  13. EDEX [Suspect]
     Active Substance: ALPROSTADIL
     Route: 051
  14. EDEX [Suspect]
     Active Substance: ALPROSTADIL
     Route: 051
  15. EDEX [Suspect]
     Active Substance: ALPROSTADIL
     Route: 051

REACTIONS (4)
  - Urinary retention [Recovered/Resolved]
  - Therapeutic product effect prolonged [Unknown]
  - Pain [Recovering/Resolving]
  - Product label issue [Unknown]
